FAERS Safety Report 9603457 (Version 2)
Quarter: 2013Q4

REPORT INFORMATION
  Report Type: Spontaneous
  Country: ES (occurrence: ES)
  Receive Date: 20131007
  Receipt Date: 20131015
  Transmission Date: 20140711
  Serious: Yes (Other)
  Sender: FDA-Public Use
  Company Number: ES-GILEAD-2013-0084875

PATIENT
  Age: 49 Year
  Sex: Male

DRUGS (9)
  1. ATRIPLA [Suspect]
     Indication: PRODUCT USED FOR UNKNOWN INDICATION
     Dosage: 1 DF, QD
  2. CLAVERSAL [Concomitant]
  3. LEVEMIR [Concomitant]
  4. BYETTA [Concomitant]
  5. HIDROFEROL [Concomitant]
     Route: 048
  6. OMACOR [Concomitant]
  7. APROVEL [Concomitant]
  8. SIMVASTATIN [Concomitant]
  9. GLICLAZIDE [Concomitant]

REACTIONS (1)
  - Gastric bypass [Unknown]
